FAERS Safety Report 8273254-1 (Version None)
Quarter: 2012Q2

REPORT INFORMATION
  Report Type: 
  Country: None (occurrence: None)
  Receive Date: 20120411
  Receipt Date: 20120402
  Transmission Date: 20120825
  Serious: Yes (Other)
  Sender: FDA-Public Use
  Company Number: JP-PFIZER INC-2012087109

PATIENT
  Age: 50 Year
  Sex: Male

DRUGS (1)
  1. BANAN [Suspect]
     Dosage: UNK
     Dates: start: 20090801, end: 20090801

REACTIONS (1)
  - OCULOMUCOCUTANEOUS SYNDROME [None]
